FAERS Safety Report 9807231 (Version 2)
Quarter: 2014Q1

REPORT INFORMATION
  Report Type: Spontaneous
  Country: AU (occurrence: AU)
  Receive Date: 20140110
  Receipt Date: 20140204
  Transmission Date: 20141002
  Serious: Yes (Death, Other)
  Sender: FDA-Public Use
  Company Number: 2014SP000021

PATIENT
  Sex: 0

DRUGS (2)
  1. VANCOMYCIN [Suspect]
     Indication: EVIDENCE BASED TREATMENT
  2. VANCOMYCIN [Suspect]
     Indication: STAPHYLOCOCCAL INFECTION

REACTIONS (2)
  - Drug ineffective [Fatal]
  - Staphylococcal infection [Fatal]
